FAERS Safety Report 15361727 (Version 12)
Quarter: 2022Q2

REPORT INFORMATION
  Report Type: Spontaneous
  Country: US (occurrence: US)
  Receive Date: 20180907
  Receipt Date: 20220418
  Transmission Date: 20220721
  Serious: Yes (Other)
  Sender: FDA-Public Use
  Company Number: US-PFIZER INC-2018041256

PATIENT
  Age: 62 Year
  Sex: Female
  Weight: 73 kg

DRUGS (2)
  1. XELJANZ [Suspect]
     Active Substance: TOFACITINIB CITRATE
     Indication: Rheumatoid arthritis
     Dosage: 5 MG, 2X/DAY
     Route: 048
  2. XELJANZ [Suspect]
     Active Substance: TOFACITINIB CITRATE
     Dosage: 5 G, 2X/DAY

REACTIONS (13)
  - Fall [Unknown]
  - Chest injury [Unknown]
  - Coccidioidomycosis [Unknown]
  - Drug ineffective [Unknown]
  - Musculoskeletal chest pain [Unknown]
  - Blood cholesterol increased [Unknown]
  - Illness [Unknown]
  - Musculoskeletal disorder [Unknown]
  - Dry mouth [Unknown]
  - Dental caries [Unknown]
  - Memory impairment [Unknown]
  - Prescribed overdose [Unknown]
  - Intentional product misuse [Unknown]
